FAERS Safety Report 6783310-2 (Version None)
Quarter: 2010Q2

REPORT INFORMATION
  Report Type: 
  Country: None (occurrence: None)
  Receive Date: 20100617
  Receipt Date: 20100604
  Transmission Date: 20101027
  Serious: Yes (Hospitalization)
  Sender: FDA-Public Use
  Company Number: 002778

PATIENT
  Sex: Male
  Weight: 66 kg

DRUGS (9)
  1. CERTOLIZUMAB PEGOL (CERTOLIZUMAB PEGOL) [Suspect]
     Indication: RHEUMATOID ARTHRITIS
     Dosage: 400 MG 1X/2 WEEKS; OPEN LABEL PHASE, SUBCUTANEOUS
     Route: 058
     Dates: start: 20091119, end: 20091221
  2. DICLOFENAC SODIUM [Concomitant]
  3. METEX [Concomitant]
  4. PREDNI H [Concomitant]
  5. CYANOCOBALAMIN [Concomitant]
  6. SULFASALAZINE [Concomitant]
  7. BISOPROLOL [Concomitant]
  8. ALENDRONATE SODIUM [Concomitant]
  9. SIMVASTATIN [Concomitant]

REACTIONS (6)
  - BLOOD LACTATE DEHYDROGENASE INCREASED [None]
  - BRONCHOPULMONARY ASPERGILLOSIS [None]
  - HAEMOGLOBIN DECREASED [None]
  - LUNG INFILTRATION [None]
  - NEISSERIA TEST POSITIVE [None]
  - RESPIRATORY FAILURE [None]
